FAERS Safety Report 14695688 (Version 1)
Quarter: 2018Q1

REPORT INFORMATION
  Report Type: Spontaneous
  Country: US (occurrence: US)
  Receive Date: 20180328
  Receipt Date: 20180328
  Transmission Date: 20180509
  Serious: Yes (Hospitalization)
  Sender: FDA-Public Use
  Company Number: None

PATIENT
  Age: 52 Year
  Sex: Female
  Weight: 87 kg

DRUGS (1)
  1. DAPTOMYCIN. [Suspect]
     Active Substance: DAPTOMYCIN
     Indication: ABDOMINAL ABSCESS
     Route: 042
     Dates: start: 20180314, end: 20180327

REACTIONS (3)
  - Myalgia [None]
  - Blood creatine phosphokinase increased [None]
  - Pharyngeal oedema [None]

NARRATIVE: CASE EVENT DATE: 20180326
